FAERS Safety Report 8010606-9 (Version None)
Quarter: 2011Q4

REPORT INFORMATION
  Report Type: 
  Country: None (occurrence: None)
  Receive Date: 20111228
  Receipt Date: 20111220
  Transmission Date: 20120403
  Serious: Yes (Other)
  Sender: FDA-Public Use
  Company Number: PHHY2011FR111378

PATIENT
  Age: 54 Year
  Sex: Female
  Weight: 64 kg

DRUGS (4)
  1. PAROXETINE HCL [Concomitant]
     Dates: end: 20110801
  2. VOLTAREN [Suspect]
     Route: 048
     Dates: start: 20111214
  3. VOLTAREN [Suspect]
     Indication: NECK PAIN
     Dosage: 75 MG, UNK
     Route: 048
  4. VOLTAREN [Suspect]
     Dosage: 75 MG, BID
     Route: 048
     Dates: start: 20110701, end: 20110801

REACTIONS (3)
  - DYSPNOEA [None]
  - FLUID RETENTION [None]
  - WEIGHT INCREASED [None]
